FAERS Safety Report 13023417 (Version 1)
Quarter: 2016Q4

REPORT INFORMATION
  Report Type: Spontaneous
  Country: US (occurrence: US)
  Receive Date: 20161213
  Receipt Date: 20161213
  Transmission Date: 20170207
  Serious: Yes (Other)
  Sender: FDA-Public Use
  Company Number: US-PRESTIGE BRANDS -1060735

PATIENT
  Sex: Female

DRUGS (1)
  1. DRAMAMINE LESS DROWSY [Suspect]
     Active Substance: MECLIZINE HYDROCHLORIDE
     Indication: MOTION SICKNESS
     Route: 048

REACTIONS (1)
  - Generalised tonic-clonic seizure [None]
